FAERS Safety Report 5124704-0 (Version None)
Quarter: 2006Q4

REPORT INFORMATION
  Report Type: 
  Country: None (occurrence: None)
  Receive Date: 20061006
  Receipt Date: 20060920
  Transmission Date: 20070319
  Serious: Yes (Hospitalization)
  Sender: FDA-Public Use
  Company Number: REM_00248_2006

PATIENT
  Age: 28 Year
  Sex: Male

DRUGS (5)
  1. REMODULIN [Suspect]
     Indication: PULMONARY HYPERTENSION
     Dosage: 75 NG/KG/MIN IV
     Route: 042
     Dates: start: 20041208
  2. BOSENTAN [Concomitant]
  3. ACENOCOUMAROL [Concomitant]
  4. FUROSEMIDE [Concomitant]
  5. SPIRONOLACTONE [Concomitant]

REACTIONS (7)
  - CATHETER BACTERAEMIA [None]
  - CATHETER SITE DISCHARGE [None]
  - CENTRAL LINE INFECTION [None]
  - CHILLS [None]
  - CLOSTRIDIAL INFECTION [None]
  - ENDOCARDITIS [None]
  - PURULENT DISCHARGE [None]
